FAERS Safety Report 10714569 (Version 3)
Quarter: 2015Q1

REPORT INFORMATION
  Report Type: Spontaneous
  Country: IT (occurrence: IT)
  Receive Date: 20150115
  Receipt Date: 20150209
  Transmission Date: 20150721
  Serious: No
  Sender: FDA-Public Use
  Company Number: IT-PFIZER INC-2014348518

PATIENT
  Age: 64 Year
  Sex: Male

DRUGS (3)
  1. CARVEDILOL. [Suspect]
     Active Substance: CARVEDILOL
     Indication: ISCHAEMIC CARDIOMYOPATHY
  2. CARVEDILOL. [Suspect]
     Active Substance: CARVEDILOL
     Indication: MYOCARDIAL ISCHAEMIA
     Dosage: 2.5 MG, DAILY
     Route: 048
     Dates: start: 20100101
  3. TRIATEC [Suspect]
     Active Substance: RAMIPRIL
     Indication: ESSENTIAL HYPERTENSION
     Dosage: 2.5 MG, DAILY
     Route: 048
     Dates: start: 20100101, end: 20141101

REACTIONS (7)
  - Face oedema [Recovered/Resolved]
  - Pharyngeal oedema [Recovered/Resolved]
  - Dysphonia [Recovered/Resolved]
  - Palatal oedema [Recovered/Resolved]
  - Dysphagia [Recovered/Resolved]
  - Oedema [Recovered/Resolved]
  - Wheezing [Recovered/Resolved]

NARRATIVE: CASE EVENT DATE: 20141101
